FAERS Safety Report 17644975 (Version 1)
Quarter: 2020Q2

REPORT INFORMATION
  Report Type: Spontaneous
  Country: US (occurrence: US)
  Receive Date: 20200408
  Receipt Date: 20200408
  Transmission Date: 20200713
  Serious: No
  Sender: FDA-Public Use
  Company Number: None

PATIENT
  Age: 41 Year
  Sex: Female
  Weight: 52.65 kg

DRUGS (7)
  1. BRAFTOVI [Suspect]
     Active Substance: ENCORAFENIB
     Indication: MALIGNANT MELANOMA
     Route: 048
     Dates: start: 20200128, end: 20200408
  2. MEKTOVI [Suspect]
     Active Substance: BINIMETINIB
     Indication: MALIGNANT MELANOMA
     Route: 048
     Dates: start: 20200128, end: 20200408
  3. OXYCODONE 10MG, ORAL [Concomitant]
  4. KEPPRA 1000MG, ORAL [Concomitant]
  5. DEXAMETHASONE 4MG ,ORAL [Concomitant]
  6. BACTRIM DS, 800-1600, ORAL [Concomitant]
  7. PROTONIX 20MG, ORAL [Concomitant]

REACTIONS (2)
  - Disease progression [None]
  - Hospice care [None]

NARRATIVE: CASE EVENT DATE: 20200408
